FAERS Safety Report 8082579-4 (Version None)
Quarter: 2012Q1

REPORT INFORMATION
  Report Type: 
  Country: None (occurrence: None)
  Receive Date: 20120127
  Receipt Date: 20110223
  Transmission Date: 20120608
  Serious: No
  Sender: FDA-Public Use
  Company Number: US-ABBOTT-11P-163-0706957-00

PATIENT
  Sex: Female

DRUGS (6)
  1. PROZAC [Concomitant]
     Indication: DEPRESSION
  2. SYNTHROID [Concomitant]
     Indication: HYPOTHYROIDISM
  3. NEXIUM [Concomitant]
     Indication: GASTROOESOPHAGEAL REFLUX DISEASE
  4. OXYCODONE HCL [Concomitant]
     Indication: BACK PAIN
     Dosage: AS NEEDED
  5. FLEXERIL [Concomitant]
     Indication: MUSCLE SPASMS
     Dosage: AS NEEDED
  6. HUMIRA [Suspect]
     Indication: CROHN'S DISEASE
     Dosage: DAY 1
     Route: 058
     Dates: start: 20110212

REACTIONS (5)
  - EYE PAIN [None]
  - MUSCULOSKELETAL CHEST PAIN [None]
  - HEADACHE [None]
  - FUNGAL INFECTION [None]
  - EYE DISORDER [None]
